FAERS Safety Report 11095493 (Version 1)
Quarter: 2015Q2

REPORT INFORMATION
  Report Type: Report from Study
  Country: US (occurrence: US)
  Receive Date: 20150506
  Receipt Date: 20150506
  Transmission Date: 20150821
  Serious: Yes (Hospitalization)
  Sender: FDA-Public Use
  Company Number: US-ABBVIE-15P-163-1383031-00

PATIENT
  Sex: Female

DRUGS (1)
  1. VIEKIRA PAK [Suspect]
     Active Substance: DASABUVIR\OMBITASVIR\PARITAPREVIR\RITONAVIR
     Indication: HEPATITIS C
     Dosage: ON MEDICATION FOR 6 WEEKS; 2 PINK IN THE AM; 1 BEIGE IN THE AM + PM
     Route: 048
     Dates: end: 20150423

REACTIONS (3)
  - Urticaria [Unknown]
  - Pneumonia [Unknown]
  - Angioedema [Unknown]
